FAERS Safety Report 24597858 (Version 3)
Quarter: 2024Q4

REPORT INFORMATION
  Report Type: Spontaneous
  Country: US (occurrence: US)
  Receive Date: 20241110
  Receipt Date: 20241206
  Transmission Date: 20250115
  Serious: No
  Sender: SANOFI AVENTIS
  Company Number: US-SA-2024SA306106

PATIENT
  Age: 63 Year
  Sex: Female

DRUGS (2)
  1. DUPIXENT [Suspect]
     Active Substance: DUPILUMAB
     Indication: Dermatitis atopic
     Dosage: 600 MG, 1X
     Route: 058
     Dates: start: 20241010, end: 20241010
  2. DUPIXENT [Suspect]
     Active Substance: DUPILUMAB
     Dosage: 300 MG, QOW
     Route: 058
     Dates: start: 202410, end: 20241028

REACTIONS (11)
  - Adjustment disorder with anxiety [Unknown]
  - Anger [Unknown]
  - Road traffic accident [Unknown]
  - Cognitive disorder [Unknown]
  - Red blood cell abnormality [Unknown]
  - Alopecia [Unknown]
  - Headache [Unknown]
  - Dermatitis atopic [Unknown]
  - Skin burning sensation [Unknown]
  - Tremor [Unknown]
  - Blood pressure increased [Unknown]

NARRATIVE: CASE EVENT DATE: 20240101
